FAERS Safety Report 19634438 (Version 1)
Quarter: 2021Q3

REPORT INFORMATION
  Report Type: Spontaneous
  Country: US (occurrence: US)
  Receive Date: 20210730
  Receipt Date: 20210730
  Transmission Date: 20211014
  Serious: Yes (Hospitalization)
  Sender: FDA-Public Use
  Company Number: None

PATIENT
  Age: 73 Year
  Sex: Female
  Weight: 66.9 kg

DRUGS (1)
  1. 5?FLUOROURACIL [5?FU] 13920 MG [Suspect]
     Active Substance: FLUOROURACIL
     Dates: end: 20210714

REACTIONS (6)
  - Asthenia [None]
  - Urinary tract infection [None]
  - Tachycardia [None]
  - Tachypnoea [None]
  - Pyrexia [None]
  - Hypotension [None]

NARRATIVE: CASE EVENT DATE: 20210725
